FAERS Safety Report 8680033 (Version 2)
Quarter: 2013Q1

REPORT INFORMATION
  Report Type: Spontaneous
  Country: US (occurrence: None)
  Receive Date: 20120706
  Receipt Date: 20130219
  Transmission Date: 20140127
  Serious: Yes (Hospitalization)
  Sender: FDA-Public Use
  Company Number: DSU-2012-05227

PATIENT
  Age: 76 Year
  Sex: Female

DRUGS (17)
  1. COENZYME Q (UBIDECARENONE) (UBIDECARENONE) [Concomitant]
  2. FOLIC ACID (FOLIC ACID) (FOLIC ACID) [Concomitant]
  3. GREEN TEA EXTRACT (CAMELLIA SINENSIS EXTRACT) (CAMELLIA SINENSIS EXTRACT) [Concomitant]
  4. LUTEIN (XANTOFYL) (XANTOFYL) [Concomitant]
  5. OMEGA 3 (EICOSAPENTAENOIC ACID, DOCOSAHEXANOIC ACID) (EICOSAPENTAENOIC ACID, DOCOSAHEXANOIC ACID) [Concomitant]
  6. B-12 (CYANOCOBALAMIN) (CYANOCOBALAMIN) [Concomitant]
  7. B-6 (PYRIDOXINE HYDROCHLORIDE) (PYRIDOXINE HYDROCHLORIDE) [Concomitant]
  8. CULTURELLE PROBIOTIC (LACTOBACILLUS NOS) (LACTOBACILLUS NOS) [Concomitant]
  9. PREMARIN (ESTROGENS CONJUGATED) (ESTROGENS CONJUGATED) [Concomitant]
  10. VERAPAMIL (VERAPAMIL) (VERAPAMIL) [Concomitant]
  11. TRAMADOL (TRAMADOL) (TRAMADOL) [Concomitant]
  12. ASA (ACETYLSALICYLIC ACID) (81 MILLIGRAM, TABLET) (ACETYLSALICYLIC ACID) [Concomitant]
  13. ADVIL (MEFENAMIC ACID) (800 MILLIGRAM) (MEFENAMIC ACID) [Concomitant]
  14. OLMESARTAN MEDOXOMIL [Suspect]
     Dosage: PER ORAL
     Route: 048
     Dates: start: 20081101, end: 20101201
  15. CALIUM PLUS VITAMIN D (ERGOCALCIFEROL, CALCIUM) (ERGOCALCIFEROL, CALCIUM) [Concomitant]
  16. CHONDROITIN SULFATE (CHONDROITIN SULFATE) (CHONDROITIN SULFATE) [Concomitant]
  17. CINNAMON CAPSULE (CINNAMOMUM VERUM) (CINNAMOMUM VERUM) [Concomitant]

REACTIONS (4)
  - WEIGHT DECREASED [None]
  - GASTRITIS [None]
  - Malabsorption [None]
  - Syncope [None]
